FAERS Safety Report 5830799-9 (Version None)
Quarter: 2008Q3

REPORT INFORMATION
  Report Type: 
  Country: None (occurrence: None)
  Receive Date: 20080801
  Receipt Date: 20071127
  Transmission Date: 20090109
  Serious: No
  Sender: FDA-Public Use
  Company Number: US-BRISTOL-MYERS SQUIBB COMPANY-13997432

PATIENT
  Age: 84 Year
  Sex: Female

DRUGS (8)
  1. WARFARIN SODIUM [Suspect]
     Route: 048
  2. LISINOPRIL [Concomitant]
  3. DIGITEK [Concomitant]
  4. FUROSEMIDE [Concomitant]
  5. RANITIDINE HCL [Concomitant]
  6. MULTI-VITAMIN [Concomitant]
  7. TYLENOL W/ CODEINE [Concomitant]
  8. ZANTAC [Concomitant]

REACTIONS (1)
  - RASH MACULAR [None]
